FAERS Safety Report 15918761 (Version 3)
Quarter: 2019Q4

REPORT INFORMATION
  Report Type: Spontaneous
  Country: US (occurrence: US)
  Receive Date: 20190205
  Receipt Date: 20191126
  Transmission Date: 20200122
  Serious: Yes (Hospitalization, Other)
  Sender: FDA-Public Use
  Company Number: US-PFIZER INC-2019048442

PATIENT
  Age: 37 Year
  Sex: Male

DRUGS (7)
  1. DOXORUBICIN HCL [Suspect]
     Active Substance: DOXORUBICIN HYDROCHLORIDE
     Indication: LEIOMYOSARCOMA RECURRENT
     Dosage: 65 MG/M2, CYCLIC (ON DAY 1) (THREE COURSES OF ADJUVANT CHEMOTHERAPY)
     Dates: start: 199506, end: 199508
  2. PEGYLATED LIPOSOMAL DOXORUBICIN [Concomitant]
     Active Substance: DOXORUBICIN
     Dosage: 55 MG/M2, MONTHLY (2 CYCLES)
  3. PEGYLATED LIPOSOMAL DOXORUBICIN [Concomitant]
     Active Substance: DOXORUBICIN
     Dosage: UNK, CYCLIC (DOSE WAS REDUCED 10% FOR CYCLES 2-4 AND 50% FOR CYCLE 5; THEREAFTER, THE DOSE WAS INCRE
  4. PEGYLATED LIPOSOMAL DOXORUBICIN [Concomitant]
     Active Substance: DOXORUBICIN
     Dosage: UNK (3 MORE CYCLES OF PLD FOR A TOTAL PLD DOSE OF 595 MG/M^2 AND TOTAL DOSE OF FREE DOXORUBICIN OF 1
  5. DACARBAZINE. [Suspect]
     Active Substance: DACARBAZINE
     Indication: LEIOMYOSARCOMA RECURRENT
     Dosage: 300 MG/M2, (ON DAY 1, 2 AND 3) (THREE COURSES OF ADJUVANT CHEMOTHERAPY)
     Dates: start: 199506, end: 199508
  6. IFOSFAMIDE. [Suspect]
     Active Substance: IFOSFAMIDE
     Indication: LEIOMYOSARCOMA RECURRENT
     Dosage: UNK, CYCLIC 2.5 GRAMS/M^2 A DAY BY CONTINUOUS INFUSION FOR 3 DAYS (THREE COURSES OF ADJUVANT CHEMOTH
     Dates: start: 199506, end: 199508
  7. CISPLATIN. [Suspect]
     Active Substance: CISPLATIN
     Indication: LEIOMYOSARCOMA RECURRENT
     Dosage: 50 MG/M2, CYCLIC (ON DAY 1) (THREE COURSES OF ADJUVANT CHEMOTHERAPY)
     Dates: start: 199506, end: 199508

REACTIONS (1)
  - Febrile neutropenia [Unknown]

NARRATIVE: CASE EVENT DATE: 1995
